FAERS Safety Report 6210590-4 (Version None)
Quarter: 2009Q2

REPORT INFORMATION
  Report Type: 
  Country: None (occurrence: None)
  Receive Date: 20090601
  Receipt Date: 20090522
  Transmission Date: 20091009
  Serious: Yes (Other)
  Sender: FDA-Public Use
  Company Number: B0572107A

PATIENT
  Sex: Male

DRUGS (3)
  1. LAMICTAL [Suspect]
     Indication: CONVULSION
     Route: 048
     Dates: start: 20090410, end: 20090427
  2. DEPAKENE [Concomitant]
     Indication: INFANTILE SPASMS
     Dosage: 225MG PER DAY
     Route: 048
     Dates: start: 20070918
  3. EXCEGRAN [Concomitant]
     Indication: CONVULSION
     Route: 048
     Dates: start: 20080211

REACTIONS (7)
  - ACCIDENTAL OVERDOSE [None]
  - BLEPHAROSPASM [None]
  - CYANOSIS [None]
  - DIZZINESS [None]
  - EPILEPSY [None]
  - HEAD TITUBATION [None]
  - VOMITING [None]
